FAERS Safety Report 9717666 (Version 1)
Quarter: 2013Q4

REPORT INFORMATION
  Report Type: Spontaneous
  Country: US (occurrence: US)
  Receive Date: 20131127
  Receipt Date: 20131127
  Transmission Date: 20140711
  Serious: No
  Sender: FDA-Public Use
  Company Number: US-B.I. PHARMACEUTICALS,INC./RIDGEFIELD-2013-BI-37787BP

PATIENT
  Sex: Female
  Weight: 75 kg

DRUGS (4)
  1. PRADAXA [Suspect]
     Indication: VENTRICULAR ARRHYTHMIA
     Dosage: 300 MG
     Route: 048
  2. MULTIVITAMINS [Concomitant]
     Route: 048
  3. SOTALOL [Concomitant]
     Route: 048
  4. COQ 10 [Concomitant]
     Dosage: FORMULATION: CAPLET
     Route: 048

REACTIONS (1)
  - Off label use [Not Recovered/Not Resolved]
